FAERS Safety Report 4277482-1 (Version None)
Quarter: 2004Q1

REPORT INFORMATION
  Report Type: 
  Country: None (occurrence: None)
  Receive Date: 20040122
  Receipt Date: 20040113
  Transmission Date: 20041129
  Serious: Yes (Other)
  Sender: FDA-Public Use
  Company Number: WAES 0401USA00977

PATIENT
  Sex: Female

DRUGS (4)
  1. INDOCIN [Suspect]
     Indication: PATENT DUCTUS ARTERIOSUS
     Route: 042
     Dates: start: 20031217, end: 20031218
  2. INDOCIN [Suspect]
     Route: 042
     Dates: start: 20040101, end: 20040102
  3. INDOCIN [Suspect]
     Route: 042
     Dates: start: 20040102, end: 20040102
  4. INDOCIN [Suspect]
     Route: 042
     Dates: start: 20040103, end: 20040103

REACTIONS (2)
  - ANURIA [None]
  - PERITONEAL DIALYSIS [None]
